FAERS Safety Report 21790708 (Version 3)
Quarter: 2023Q1

REPORT INFORMATION
  Report Type: Spontaneous
  Country: JP (occurrence: JP)
  Receive Date: 20221228
  Receipt Date: 20230206
  Transmission Date: 20230418
  Serious: Yes (Life-Threatening)
  Sender: FDA-Public Use
  Company Number: JP-MYLANLABS-2022M1147702

PATIENT
  Age: 18 Year
  Sex: Male

DRUGS (2)
  1. EPIPEN [Suspect]
     Active Substance: EPINEPHRINE
     Indication: Food allergy
     Dosage: 0.3 MILLIGRAM, QD
     Route: 030
     Dates: start: 202008
  2. EPIPEN [Suspect]
     Active Substance: EPINEPHRINE
     Indication: Urticaria

REACTIONS (2)
  - Device failure [Unknown]
  - Device use issue [Unknown]

NARRATIVE: CASE EVENT DATE: 20200801
